FAERS Safety Report 4808672-4 (Version None)
Quarter: 2005Q4

REPORT INFORMATION
  Report Type: 
  Country: None (occurrence: None)
  Receive Date: 20051021
  Receipt Date: 20050811
  Transmission Date: 20060501
  Serious: Yes (Death, Hospitalization)
  Sender: FDA-Public Use
  Company Number: 2005113889

PATIENT
  Age: 89 Year
  Sex: Female

DRUGS (1)
  1. CELEBREX [Suspect]
     Indication: ILL-DEFINED DISORDER
     Dosage: ORAL
     Route: 048

REACTIONS (9)
  - ABDOMINAL PAIN [None]
  - ANAEMIA [None]
  - HAEMATEMESIS [None]
  - HYPERHIDROSIS [None]
  - INTESTINAL ISCHAEMIA [None]
  - MELAENA [None]
  - METABOLIC ACIDOSIS [None]
  - RASH MACULAR [None]
  - TACHYPNOEA [None]
